FAERS Safety Report 10874295 (Version 1)
Quarter: 2015Q1

REPORT INFORMATION
  Report Type: Spontaneous
  Country: US (occurrence: None)
  Receive Date: 20150223
  Receipt Date: 20150223
  Transmission Date: 20150721
  Serious: No
  Sender: FDA-Public Use
  Company Number: None

PATIENT
  Sex: Female
  Weight: 66.23 kg

DRUGS (2)
  1. ESCITALOPRAM [Suspect]
     Active Substance: ESCITALOPRAM OXALATE
     Indication: MOOD ALTERED
     Dosage: 1-2 MONTHS 2013 20 MG DAILY ORAL
     Route: 048
     Dates: start: 2013
  2. ESCITALOPRAM [Suspect]
     Active Substance: ESCITALOPRAM OXALATE
     Indication: MIGRAINE PROPHYLAXIS
     Dosage: 1/2 MONTHS 2014 20 MG DAILY ORAL
     Route: 048
     Dates: start: 2014

REACTIONS (3)
  - Product substitution issue [None]
  - Drug ineffective [None]
  - Migraine [None]

NARRATIVE: CASE EVENT DATE: 2013
